FAERS Safety Report 10134171 (Version 1)
Quarter: 2014Q2

REPORT INFORMATION
  Report Type: Spontaneous
  Country: US (occurrence: US)
  Receive Date: 20140428
  Receipt Date: 20140428
  Transmission Date: 20141212
  Serious: No
  Sender: FDA-Public Use
  Company Number: US-SANOFI-AVENTIS-2013SA075728

PATIENT
  Age: 48 Year
  Sex: Female

DRUGS (2)
  1. ALLEGRA [Suspect]
     Indication: ALLERGIC SINUSITIS
     Route: 048
     Dates: start: 20120601
  2. LOESTRIN [Concomitant]
     Indication: CONTRACEPTION
     Route: 065
     Dates: start: 201210

REACTIONS (1)
  - Extra dose administered [Unknown]
